FAERS Safety Report 15492385 (Version 1)
Quarter: 2018Q4

REPORT INFORMATION
  Report Type: Spontaneous
  Country: IN (occurrence: IN)
  Receive Date: 20181012
  Receipt Date: 20181012
  Transmission Date: 20190205
  Serious: Yes (Hospitalization)
  Sender: FDA-Public Use
  Company Number: None

PATIENT
  Age: 44 Year
  Sex: Female
  Weight: 58 kg

DRUGS (4)
  1. ABX [Concomitant]
     Dates: start: 20160107
  2. TXX [Concomitant]
     Dates: start: 20181001
  3. DSS [Concomitant]
     Active Substance: DEXTRAN SULFATE SODIUM
     Dates: start: 20181001
  4. KADCYLA [Suspect]
     Active Substance: ADO-TRASTUZUMAB EMTANSINE
     Route: 013
     Dates: start: 20181003, end: 20181012

REACTIONS (1)
  - Fatigue [None]

NARRATIVE: CASE EVENT DATE: 20181011
